FAERS Safety Report 13407570 (Version 1)
Quarter: 2017Q2

REPORT INFORMATION
  Report Type: Spontaneous
  Country: US (occurrence: US)
  Receive Date: 20170405
  Receipt Date: 20170405
  Transmission Date: 20170830
  Serious: No
  Sender: FDA-Public Use
  Company Number: US-BIOGEN-2017BI00379526

PATIENT

DRUGS (1)
  1. TYSABRI [Suspect]
     Active Substance: NATALIZUMAB
     Indication: MULTIPLE SCLEROSIS
     Route: 065

REACTIONS (8)
  - Irritability [Unknown]
  - Pain in extremity [Unknown]
  - Fatigue [Unknown]
  - Muscular weakness [Unknown]
  - Depressed mood [Unknown]
  - Muscle spasms [Unknown]
  - Drug effect decreased [Unknown]
  - Multiple sclerosis [Unknown]
